FAERS Safety Report 6982934-7 (Version None)
Quarter: 2010Q3

REPORT INFORMATION
  Report Type: 
  Country: None (occurrence: None)
  Receive Date: 20100914
  Receipt Date: 20100531
  Transmission Date: 20110219
  Serious: Yes (Other)
  Sender: FDA-Public Use
  Company Number: US-PFIZER INC-2010051947

PATIENT
  Sex: Female
  Weight: 72.1 kg

DRUGS (3)
  1. LYRICA [Suspect]
     Indication: OPTIC NEURITIS
     Dosage: 50 MG, 1X/DAY
     Route: 048
     Dates: start: 20090601
  2. LYRICA [Suspect]
     Dosage: 200 MG, 2X/DAY
     Route: 048
     Dates: end: 20100419
  3. METOPROLOL [Concomitant]
     Indication: ANGINA PECTORIS
     Dosage: UNK MG, UNK
     Route: 048

REACTIONS (7)
  - ABDOMINAL PAIN UPPER [None]
  - DIARRHOEA [None]
  - DYSPNOEA [None]
  - FEELING ABNORMAL [None]
  - NAUSEA [None]
  - OEDEMA PERIPHERAL [None]
  - WEIGHT INCREASED [None]
